FAERS Safety Report 23119398 (Version 1)
Quarter: 2023Q4

REPORT INFORMATION
  Report Type: Spontaneous
  Country: CH (occurrence: CH)
  Receive Date: 20231028
  Receipt Date: 20231028
  Transmission Date: 20240110
  Serious: Yes (Death, Hospitalization)
  Sender: FDA-Public Use
  Company Number: None

PATIENT
  Age: 89 Year
  Sex: Male
  Weight: 79 kg

DRUGS (4)
  1. AMOXICILLIN\CLAVULANATE POTASSIUM [Suspect]
     Active Substance: AMOXICILLIN\CLAVULANATE POTASSIUM
     Indication: Appendicitis
     Dosage: 1875 MILLIGRAM DAILY; CO-AMOXI MEPHA 625 MG P.O. 1-1-1 FROM 08.08.2023 TO 13.08.2023
     Route: 048
     Dates: start: 20230808, end: 20230813
  2. DAFALGAN [Suspect]
     Active Substance: ACETAMINOPHEN
     Indication: Analgesic therapy
     Dosage: 1500 MILLIGRAM DAILY; DAFALGAN 500 MG P.O. 1-1-1 FROM 08.08.2023 TO 13.08.2023
     Route: 048
     Dates: start: 20230808, end: 20230813
  3. HYPERICUM PERFORATUM WHOLE [Concomitant]
     Active Substance: HYPERICUM PERFORATUM WHOLE
     Indication: Depression
     Dosage: 900 MILLIGRAM DAILY; DEPRIVITA 900 MG P.O., 1X/D. STOP ON 24.08.2023
     Route: 048
     Dates: end: 20230824
  4. DUTASTERIDE\TAMSULOSIN [Concomitant]
     Active Substance: DUTASTERIDE\TAMSULOSIN
     Indication: Benign prostatic hyperplasia
     Dosage: .5 MILLIGRAM DAILY; DUODART 0.5 MG P.O., 1X/D.
     Route: 048

REACTIONS (1)
  - Drug-induced liver injury [Fatal]

NARRATIVE: CASE EVENT DATE: 20230824
